FAERS Safety Report 6297417-X (Version None)
Quarter: 2009Q3

REPORT INFORMATION
  Report Type: 
  Country: None (occurrence: None)
  Receive Date: 20090805
  Receipt Date: 20090727
  Transmission Date: 20100115
  Serious: Yes (Hospitalization)
  Sender: FDA-Public Use
  Company Number: BE-ASTRAZENECA-2009SE06004

PATIENT
  Age: 13 Year
  Sex: Male
  Weight: 61 kg

DRUGS (15)
  1. OMEPRAZOLE [Suspect]
     Indication: GASTROINTESTINAL INFLAMMATION
     Route: 048
     Dates: start: 20080620
  2. CYCLOPHOSPHAMIDE [Suspect]
     Route: 042
     Dates: start: 20080714, end: 20080714
  3. CYTARABINE [Suspect]
     Route: 037
     Dates: start: 20080716, end: 20080716
  4. CYTARABINE [Suspect]
     Route: 042
     Dates: start: 20090716, end: 20090719
  5. CYTARABINE [Suspect]
     Route: 042
     Dates: start: 20090723, end: 20090726
  6. METHOTREXATE [Suspect]
     Route: 037
     Dates: start: 20080716, end: 20080716
  7. METHYLPREDNISOLONE [Suspect]
     Route: 037
     Dates: start: 20080716, end: 20080716
  8. TRIMETHROPRIM-SULPHAMETHOXAZOLE [Suspect]
     Route: 048
     Dates: start: 20080603
  9. THIOGUANINE [Concomitant]
     Route: 048
     Dates: start: 20080714, end: 20080728
  10. MESNA [Concomitant]
     Route: 042
     Dates: start: 20080714, end: 20080714
  11. ONDANSETRON [Concomitant]
     Dates: start: 20080714, end: 20080729
  12. VINCRISTINE [Concomitant]
     Dates: end: 20080701
  13. ADRIAMYCIN RDF [Concomitant]
  14. ELSPAR [Concomitant]
     Dosage: 20.000 U/M2
     Dates: end: 20080620
  15. DEXAMETHASONE [Concomitant]
     Route: 048
     Dates: start: 20080602

REACTIONS (3)
  - DYSARTHRIA [None]
  - FACIAL PARESIS [None]
  - HEMIPARESIS [None]
